FAERS Safety Report 4530704-1 (Version None)
Quarter: 2004Q4

REPORT INFORMATION
  Report Type: 
  Country: None (occurrence: None)
  Receive Date: 20041216
  Receipt Date: 20041130
  Transmission Date: 20050328
  Serious: Yes (Other)
  Sender: FDA-Public Use
  Company Number: DSA_25435_2004

PATIENT
  Age: 36 Year
  Sex: Female

DRUGS (3)
  1. TEMESTA [Suspect]
     Dosage: DF  IH
     Route: 055
     Dates: start: 20040101, end: 20040101
  2. ALCOHOL [Suspect]
     Dosage: PO
     Route: 048
     Dates: start: 20040101, end: 20040101
  3. CANNABIS [Suspect]
     Dosage: DF  IN
     Route: 055
     Dates: start: 20040101, end: 20040101

REACTIONS (4)
  - ALCOHOL USE [None]
  - INTENTIONAL MISUSE [None]
  - POLYSUBSTANCE ABUSE [None]
  - SEXUAL ASSAULT VICTIM [None]
